FAERS Safety Report 8996989 (Version 3)
Quarter: 2013Q1

REPORT INFORMATION
  Report Type: Spontaneous
  Country: GB (occurrence: None)
  Receive Date: 20121220
  Receipt Date: 20130118
  Transmission Date: 20140127
  Serious: Yes (Other)
  Sender: FDA-Public Use
  Company Number: 2012AP004180

PATIENT
  Age: 29 Year
  Sex: Female

DRUGS (1)
  1. OMEPRAZOLE (OMEPRAZOLE) [Suspect]
     Indication: PROPHYLAXIS AGAINST GASTROINTESTINAL ULCER
     Dosage: CAP
     Dates: start: 20081016

REACTIONS (6)
  - Forceps delivery [None]
  - Haemorrhage in pregnancy [None]
  - Infection [None]
  - Pelvic pain [None]
  - Pregnancy [None]
  - Maternal exposure during pregnancy [None]
